FAERS Safety Report 7300749-7 (Version None)
Quarter: 2011Q1

REPORT INFORMATION
  Report Type: 
  Country: None (occurrence: None)
  Receive Date: 20110218
  Receipt Date: 20100416
  Transmission Date: 20110831
  Serious: Yes (Death, Hospitalization)
  Sender: FDA-Public Use
  Company Number: US-RANBAXY-2010US-33676

PATIENT

DRUGS (27)
  1. LAXIS [Concomitant]
     Indication: OEDEMA
     Dosage: UNK, UNK
     Route: 065
  2. PRILOSEC [Concomitant]
     Indication: GASTROOESOPHAGEAL REFLUX PROPHYLAXIS
     Dosage: UNK, UNK
     Route: 065
  3. CYCLOSPORINE [Concomitant]
     Indication: PROPHYLAXIS AGAINST TRANSPLANT REJECTION
     Dosage: UNK, UNK
     Route: 065
  4. FOLIC ACID [Concomitant]
     Indication: ANAEMIA
     Dosage: UNK, UNK
     Route: 065
  5. METOPROLOL [Concomitant]
     Indication: HYPERTENSION
     Dosage: UNK, UNK
     Route: 065
  6. COUMADIN [Concomitant]
     Indication: ATRIAL FIBRILLATION
     Dosage: UNK, UNK
     Route: 065
  7. DARVON [Concomitant]
     Indication: PAIN
     Dosage: UNK, UNK
     Route: 065
  8. MEDROL [Concomitant]
     Indication: PROPHYLAXIS AGAINST TRANSPLANT REJECTION
     Dosage: UNK, UNK
     Route: 065
  9. CELLCEPT [Concomitant]
     Indication: PROPHYLAXIS AGAINST TRANSPLANT REJECTION
     Dosage: UNK, UNK
     Route: 065
  10. LEVITIRACETAM [Concomitant]
     Indication: CONVULSION
     Dosage: UNK, UNK
     Route: 065
  11. MAGNESIUM OXIDE [Concomitant]
     Indication: HYPOMAGNESAEMIA
     Dosage: UNK, UNK
     Route: 065
  12. NORVASC [Concomitant]
     Indication: HYPERTENSION
     Dosage: UNK, UNK
     Route: 065
  13. PROSCAR [Concomitant]
     Indication: URINARY RETENTION
     Dosage: UNK, UNK
     Route: 065
  14. ASPIRIN [Concomitant]
     Indication: CARDIOVASCULAR EVENT PROPHYLAXIS
     Dosage: UNK, UNK
     Route: 065
  15. GANCICLOVIR [Concomitant]
     Indication: CYTOMEGALOVIRUS INFECTION
     Dosage: UNK, UNK
     Route: 065
  16. LANTUS [Concomitant]
     Indication: DIABETES MELLITUS
     Dosage: UNK, UNK
     Route: 065
  17. NOVOLOG [Concomitant]
     Indication: DIABETES MELLITUS
     Dosage: UNK, UNK
     Route: 065
  18. SIROLIMUS [Concomitant]
     Indication: PROPHYLAXIS AGAINST TRANSPLANT REJECTION
     Dosage: UNK, UNK
     Route: 065
  19. GANCICLOVIR [Suspect]
     Indication: ANTIVIRAL PROPHYLAXIS
     Dosage: 1000 MG, TID
     Route: 048
     Dates: start: 20071130, end: 20080307
  20. MARIBAVIR (PLACEBO) [Suspect]
     Indication: ANTIVIRAL PROPHYLAXIS
     Dosage: 100 MG, BID
     Route: 048
     Dates: start: 20071130, end: 20080307
  21. NEPHRO CAPS [Concomitant]
     Indication: VITAMIN SUPPLEMENTATION
     Dosage: UNK, UNK
     Route: 065
  22. TENORMIN [Concomitant]
     Indication: HYPERTENSION
     Dosage: UNK, UNK
     Route: 065
  23. VALCYTE [Concomitant]
     Indication: CYTOMEGALOVIRUS INFECTION
     Dosage: UNK, UNK
     Route: 065
  24. ACYCLOVIR (PLACEBO) [Suspect]
     Indication: ANTIVIRAL PROPHYLAXIS
     Dosage: 400 MG, BID
     Route: 048
     Dates: start: 20071130, end: 20080307
  25. ARANESP [Concomitant]
     Indication: ANAEMIA
     Dosage: UNK, UNK
     Route: 065
  26. BACTRIM DS [Concomitant]
     Indication: INFECTION PROPHYLAXIS
     Dosage: UNK, UNK
     Route: 065
  27. FLOMAX [Concomitant]
     Indication: BENIGN PROSTATIC HYPERPLASIA
     Dosage: UNK, UNK
     Route: 065

REACTIONS (6)
  - SEPSIS [None]
  - PNEUMONIA CYTOMEGALOVIRAL [None]
  - HYPERKALAEMIA [None]
  - DRUG INEFFECTIVE [None]
  - CYTOMEGALOVIRUS INFECTION [None]
  - CLOSTRIDIUM DIFFICILE COLITIS [None]
